FAERS Safety Report 9877082 (Version 4)
Quarter: 2014Q2

REPORT INFORMATION
  Report Type: Report from Study
  Country: CA (occurrence: CA)
  Receive Date: 20140206
  Receipt Date: 20140402
  Transmission Date: 20141212
  Serious: Yes (Other)
  Sender: FDA-Public Use
  Company Number: CA-ROCHE-1345209

PATIENT
  Age: 71 Year
  Sex: Female
  Weight: 61.2 kg

DRUGS (12)
  1. RITUXAN [Suspect]
     Indication: GRANULOMATOSIS WITH POLYANGIITIS
     Route: 042
     Dates: start: 2010
  2. RITUXAN [Suspect]
     Indication: RHEUMATOID ARTHRITIS
  3. TACROLIMUS [Concomitant]
  4. IMURAN [Concomitant]
  5. PREDNISONE [Concomitant]
  6. LEVOTHYROXINE [Concomitant]
  7. RABEPRAZOLE [Concomitant]
  8. ZOPICLONE [Concomitant]
  9. ATORVASTATIN [Concomitant]
  10. ACETYLSALICYLIC ACID [Concomitant]
     Dosage: LOW DOSE
     Route: 065
  11. ACETAMINOPHEN [Concomitant]
  12. RABEPRAZOLE [Concomitant]

REACTIONS (4)
  - Renal impairment [Unknown]
  - Heart rate decreased [Unknown]
  - Hypertension [Unknown]
  - Laceration [Unknown]
